FAERS Safety Report 17200791 (Version 1)
Quarter: 2019Q4

REPORT INFORMATION
  Report Type: Spontaneous
  Country: FR (occurrence: FR)
  Receive Date: 20191226
  Receipt Date: 20191226
  Transmission Date: 20200122
  Serious: Yes (Other)
  Sender: FDA-Public Use
  Company Number: FR-GLAXOSMITHKLINE-FR2019230809

PATIENT
  Age: 32 Year
  Sex: Female

DRUGS (1)
  1. ORLISTAT. [Suspect]
     Active Substance: ORLISTAT
     Indication: WEIGHT DECREASED
     Dosage: 240 MG, QD
     Route: 048
     Dates: start: 201909, end: 201910

REACTIONS (2)
  - Hepatitis cholestatic [Recovered/Resolved]
  - Fatigue [Recovered/Resolved]

NARRATIVE: CASE EVENT DATE: 201910
